FAERS Safety Report 4712436-X (Version None)
Quarter: 2005Q3

REPORT INFORMATION
  Report Type: 
  Country: None (occurrence: None)
  Receive Date: 20050712
  Receipt Date: 20050707
  Transmission Date: 20060218
  Serious: Yes (Hospitalization)
  Sender: FDA-Public Use
  Company Number: PHFR2005GB02417

PATIENT
  Sex: Female

DRUGS (1)
  1. DIOVAN [Suspect]
     Route: 065

REACTIONS (4)
  - PALPITATIONS [None]
  - PHOTOSENSITIVITY REACTION [None]
  - RASH [None]
  - SKIN DISORDER [None]
